FAERS Safety Report 4892570-4 (Version None)
Quarter: 2006Q1

REPORT INFORMATION
  Report Type: 
  Country: None (occurrence: None)
  Receive Date: 20060126
  Receipt Date: 20051114
  Transmission Date: 20060701
  Serious: Yes (Death, Other)
  Sender: FDA-Public Use
  Company Number: PHNU2005DE03766

PATIENT
  Age: 75 Year
  Sex: Male

DRUGS (2)
  1. ZOMETA [Suspect]
     Indication: OSTEOLYSIS
     Dosage: 4 MG, UNK
     Dates: start: 20040720, end: 20051101
  2. DECORTIN [Concomitant]
     Indication: THROMBOCYTOPENIA
     Dosage: 40 MG/DAY
     Route: 048
     Dates: start: 20041001, end: 20051101

REACTIONS (5)
  - DENTAL CARIES [None]
  - MALIGNANT NEOPLASM PROGRESSION [None]
  - OSTEOMYELITIS [None]
  - OSTEONECROSIS [None]
  - PAIN IN JAW [None]
